FAERS Safety Report 9314685 (Version 2)
Quarter: 2014Q1

REPORT INFORMATION
  Report Type: Report from Study
  Country: IT (occurrence: IT)
  Receive Date: 20130529
  Receipt Date: 20140130
  Transmission Date: 20141002
  Serious: Yes (Death)
  Sender: FDA-Public Use
  Company Number: IT-AMGEN-ITACT2013037823

PATIENT
  Age: 58 Year
  Sex: Female

DRUGS (3)
  1. DENOSUMAB [Suspect]
     Indication: BREAST CANCER
     Dosage: 120 MG, Q4WK
     Route: 065
     Dates: start: 20120724
  2. HERCEPTIN [Concomitant]
     Dosage: UNK
     Dates: start: 20120703, end: 20120913
  3. VINORELBINE [Concomitant]
     Dosage: UNK
     Dates: start: 20120821, end: 20120913

REACTIONS (1)
  - Death [Fatal]
